FAERS Safety Report 5751318-1 (Version None)
Quarter: 2008Q2

REPORT INFORMATION
  Report Type: 
  Country: None (occurrence: None)
  Receive Date: 20080528
  Receipt Date: 20080521
  Transmission Date: 20081010
  Serious: Yes (Hospitalization)
  Sender: FDA-Public Use
  Company Number: US-BAXTER-2008BH000894

PATIENT
  Age: 58 Year
  Sex: Male
  Weight: 108 kg

DRUGS (8)
  1. HEPARIN SODIUM INJECTION [Suspect]
     Indication: PROPHYLAXIS
     Route: 010
  2. CALCITRIOL [Concomitant]
     Indication: RENAL DISORDER
     Route: 065
  3. CLARITIN [Concomitant]
     Indication: HYPERSENSITIVITY
     Route: 065
  4. EPOGEN [Concomitant]
     Indication: RED BLOOD CELL COUNT INCREASED
     Route: 065
  5. POTASSIUM CHLORIDE [Concomitant]
     Indication: DIALYSIS
     Route: 065
  6. PROTONIX [Concomitant]
     Indication: DIALYSIS
     Route: 065
  7. RENAGIL [Concomitant]
     Indication: DIALYSIS
     Route: 065
  8. NEORAL [Concomitant]
     Indication: LIVER TRANSPLANT
     Route: 065

REACTIONS (3)
  - ADVERSE EVENT [None]
  - GASTROENTERITIS VIRAL [None]
  - VOMITING [None]
